FAERS Safety Report 21634542 (Version 1)
Quarter: 2022Q4

REPORT INFORMATION
  Report Type: Spontaneous
  Country: GB (occurrence: None)
  Receive Date: 20221123
  Receipt Date: 20221123
  Transmission Date: 20230113
  Serious: Yes (Other)
  Sender: FDA-Public Use
  Company Number: 2022A380557

PATIENT
  Age: 67 Year
  Sex: Female
  Weight: 94 kg

DRUGS (18)
  1. DAPAGLIFLOZIN [Suspect]
     Active Substance: DAPAGLIFLOZIN
     Dosage: 10, TAKE ONE DAILY
     Route: 065
     Dates: start: 20220927
  2. CALCIUM CARBONATE\CHOLECALCIFEROL [Concomitant]
     Active Substance: CALCIUM CARBONATE\CHOLECALCIFEROL
     Dosage: TAKE 1 TO BE TAKEN TWICE DAILY
     Dates: start: 20170419
  3. AMLODIPINE [Concomitant]
     Active Substance: AMLODIPINE BESYLATE
     Dosage: TAKE ONE DAILY
     Dates: start: 20180215
  4. ATORVASTATIN [Concomitant]
     Active Substance: ATORVASTATIN
     Dosage: TAKE ONE DAILY
     Dates: start: 20150616
  5. CANDESARTAN [Concomitant]
     Active Substance: CANDESARTAN
     Dosage: 1 EVERY DAY
     Dates: start: 20120218
  6. CLOTRIMAZOLE [Concomitant]
     Active Substance: CLOTRIMAZOLE
     Dosage: INSERT ONE PESSARY INTO THE VAGINA AT NIGHT FOR...
     Dates: start: 20221014, end: 20221021
  7. DOXYCYCLINE [Concomitant]
     Active Substance: DOXYCYCLINE
     Dosage: TWO TODAY AND ONE DAILY THEREAFTER RESCUE PACK
     Dates: start: 20220816, end: 20220823
  8. BUDESONIDE\FORMOTEROL [Concomitant]
     Active Substance: BUDESONIDE\FORMOTEROL
     Dosage: 3 PUFFS BD, TO BE INCREASED TO 4 PUFFS BD IF NE...
     Dates: start: 20180202
  9. FLUOXETINE [Concomitant]
     Active Substance: FLUOXETINE HYDROCHLORIDE
     Dosage: 2 EVERY DAY
     Dates: start: 20210713
  10. FOLIC ACID [Concomitant]
     Active Substance: FOLIC ACID
     Dosage: TAKE ONE DAILY ON SIX DAYS OF THE WEEK
     Dates: start: 20180102
  11. GLICLAZIDE [Concomitant]
     Active Substance: GLICLAZIDE
     Dosage: TAKE 2 BEFORE BREAKFAST AND 2 BEFORE EVENING MEAL
     Dates: start: 20160921
  12. LANSOPRAZOLE [Concomitant]
     Active Substance: LANSOPRAZOLE
     Dosage: TAKE ONE ONCE DAILY
     Dates: start: 20160419
  13. METFORMIN [Concomitant]
     Active Substance: METFORMIN HYDROCHLORIDE
     Dosage: 2 TWICE DAILY
     Dates: start: 20120218
  14. METHOTREXATE [Concomitant]
     Active Substance: METHOTREXATE
     Dosage: 25MG (TEN TABLETS) TO BE TAKEN WEEKLY
     Dates: start: 20180102
  15. ACETAMINOPHEN [Concomitant]
     Active Substance: ACETAMINOPHEN
     Dosage: 2 FOUR TIMES A DAY IF REQUIRED
     Dates: start: 20120218
  16. ALBUTEROL [Concomitant]
     Active Substance: ALBUTEROL
     Dosage: INHALE 1-2 PUFFS FOUR TIMES DAILY WHEN REQUIRED
     Dates: start: 20120218
  17. NEUTROGENA TGEL THERAPEUTIC [Concomitant]
     Active Substance: COAL TAR
     Dosage: USE WHEN REQUIRED
     Dates: start: 20120504
  18. TRAMADOL [Concomitant]
     Active Substance: TRAMADOL
     Dosage: TAKE ONE TO TWO CAPSULES EVERY 4 TO 6 HOURS WHE...
     Dates: start: 20200206

REACTIONS (2)
  - Genital rash [Recovered/Resolved]
  - Rash [Recovered/Resolved]

NARRATIVE: CASE EVENT DATE: 20220927
